FAERS Safety Report 6163854-7 (Version None)
Quarter: 2009Q2

REPORT INFORMATION
  Report Type: 
  Country: None (occurrence: None)
  Receive Date: 20090422
  Receipt Date: 20080911
  Transmission Date: 20091009
  Serious: No
  Sender: FDA-Public Use
  Company Number: US-BRISTOL-MYERS SQUIBB COMPANY-14308423

PATIENT
  Age: 65 Year
  Sex: Female

DRUGS (1)
  1. HYDREA [Suspect]
     Indication: MYELOPROLIFERATIVE DISORDER
     Dosage: DOSE REDUCED BY 500 MG. 1500MG WAS GIVEN BETWEEN APR-2008 AND JUL-2008.
     Route: 048
     Dates: start: 20030101

REACTIONS (2)
  - AGEUSIA [None]
  - ANOSMIA [None]
